FAERS Safety Report 23634526 (Version 1)
Quarter: 2024Q1

REPORT INFORMATION
  Report Type: Report from Study
  Country: US (occurrence: US)
  Receive Date: 20240315
  Receipt Date: 20240315
  Transmission Date: 20240410
  Serious: Yes (Other)
  Sender: FDA-Public Use
  Company Number: US-ABBVIE-5677844

PATIENT
  Sex: Male

DRUGS (1)
  1. RINVOQ [Suspect]
     Active Substance: UPADACITINIB
     Indication: Colitis ulcerative
     Route: 048

REACTIONS (5)
  - Deafness unilateral [Recovering/Resolving]
  - Acne [Recovering/Resolving]
  - Depression [Recovering/Resolving]
  - Confusional state [Recovering/Resolving]
  - Rash [Recovering/Resolving]
